FAERS Safety Report 8811141 (Version 2)
Quarter: 2012Q4

REPORT INFORMATION
  Report Type: 
  Country: US (occurrence: US)
  Receive Date: 20120927
  Receipt Date: 20121102
  Transmission Date: 20130627
  Serious: Yes (Hospitalization)
  Sender: FDA-Public Use
  Company Number: US-BAYER-2012-100311

PATIENT
  Age: 34 Year
  Sex: Female
  Weight: 66.6 kg

DRUGS (21)
  1. YAZ [Suspect]
     Indication: CONTRACEPTION
     Dosage: UNK
     Dates: start: 20100308, end: 20100928
  2. YAZ [Suspect]
     Indication: PREMENSTRUAL SYNDROME
  3. NYSTATIN [Concomitant]
     Dosage: 100,000
     Dates: start: 20100721
  4. FLUCONAZOLE [Concomitant]
     Dosage: 150 mg, UNK
     Dates: start: 20100722
  5. XANAX [Concomitant]
     Indication: ANXIETY
     Dosage: 0.25 mg, PRN
     Route: 048
     Dates: start: 20100608, end: 20100901
  6. XANAX [Concomitant]
     Indication: ANXIETY
     Dosage: UNK
     Dates: start: 20100928
  7. ZOCOR [Concomitant]
     Indication: HYPERLIPIDEMIA
     Dosage: 40 mg, HS
     Route: 048
     Dates: start: 20100805
  8. ZOCOR [Concomitant]
     Indication: HYPERLIPIDEMIA
     Dosage: UNK
     Dates: start: 20100901
  9. ZOCOR [Concomitant]
     Indication: HYPERLIPIDEMIA
     Dosage: UNK
     Dates: start: 20100928
  10. AMBIEN [Concomitant]
     Dosage: 10 mg, PRN
     Route: 048
     Dates: start: 20100826
  11. AMBIEN [Concomitant]
     Dosage: 10 mg, PRN
     Route: 048
     Dates: start: 20100928
  12. AMBIEN [Concomitant]
     Dosage: 10 mg, PRN
     Route: 048
     Dates: start: 20100925
  13. INDERAL [Concomitant]
     Indication: TACHYCARDIA
     Dosage: 10 mg, BID
     Route: 048
     Dates: start: 20100927
  14. INDERAL [Concomitant]
     Indication: TACHYCARDIA
     Dosage: UNK
     Dates: start: 20100928
  15. STATIN [Concomitant]
     Indication: HYPERLIPIDEMIA
     Dosage: UNK
  16. IBUPROFEN [Concomitant]
     Indication: PAIN
     Dosage: 800 mg,6 hours as needed
     Route: 048
  17. PEPCID [Concomitant]
     Indication: PROPHYLAXIS
  18. MOTRIN [Concomitant]
     Dosage: 800 mg, UNK
     Dates: start: 20100826
  19. HYDROCODONE/ACETAMINOPHEN [Concomitant]
     Dosage: 1-2 tablets
     Dates: start: 20100718
  20. DOC-Q-LACE [Concomitant]
     Dosage: 100 mg, take 1 capsule
     Dates: start: 20100718
  21. CYCLOBENZAPRINE [Concomitant]
     Dosage: 5 mg, take 1 tablet
     Dates: start: 20100812

REACTIONS (2)
  - Pulmonary embolism [None]
  - Deep vein thrombosis [None]
